FAERS Safety Report 20337197 (Version 2)
Quarter: 2022Q1

REPORT INFORMATION
  Report Type: Report from Study
  Country: US (occurrence: US)
  Receive Date: 20220114
  Receipt Date: 20220226
  Transmission Date: 20220424
  Serious: No
  Sender: FDA-Public Use
  Company Number: US-SA-SAC20220106000270

PATIENT
  Age: 73 Year
  Sex: Male

DRUGS (2)
  1. DUPILUMAB [Suspect]
     Active Substance: DUPILUMAB
     Indication: Asthma
     Dosage: 300 MG, FREQUENCY: OTHER
     Route: 058
     Dates: start: 20211029, end: 20220217
  2. FASENRA [Concomitant]
     Active Substance: BENRALIZUMAB
     Dosage: UNK

REACTIONS (6)
  - Fatigue [Recovering/Resolving]
  - Arthralgia [Recovered/Resolved]
  - Eye pain [Recovered/Resolved]
  - Eye swelling [Recovering/Resolving]
  - Blepharitis [Unknown]
  - Product use issue [Unknown]

NARRATIVE: CASE EVENT DATE: 20211029
